FAERS Safety Report 8536605 (Version 4)
Quarter: 2014Q2

REPORT INFORMATION
  Report Type: Report from Study
  Country: FR (occurrence: FR)
  Receive Date: 20120430
  Receipt Date: 20140612
  Transmission Date: 20141212
  Serious: Yes (Other)
  Sender: FDA-Public Use
  Company Number: FR-ROCHE-1056948

PATIENT
  Age: 76 Year
  Sex: Male
  Weight: 81 kg

DRUGS (32)
  1. RITUXIMAB [Suspect]
     Indication: B-CELL LYMPHOMA
     Dosage: LAST DOSE PRIOR TO SAE: 16/APR/2012
     Route: 042
     Dates: start: 20060111, end: 20061110
  2. RITUXIMAB [Suspect]
     Dosage: LAST DOSE PRIOR TO SAE: 14/MAY/2012
     Route: 042
     Dates: start: 20120220
  3. RHUPH20/RITUXIMAB [Suspect]
     Indication: B-CELL LYMPHOMA
     Dosage: LAST DOSE PRIOR TO SAE: 13/JUN/2012
     Route: 058
     Dates: start: 20120319
  4. RHUPH20/RITUXIMAB [Suspect]
     Route: 058
     Dates: start: 20120416
  5. RHUPH20/RITUXIMAB [Suspect]
     Route: 058
     Dates: start: 20120514
  6. RHUPH20/RITUXIMAB [Suspect]
     Route: 058
     Dates: start: 20120625
  7. RHUPH20/RITUXIMAB [Suspect]
     Route: 058
     Dates: start: 20120723
  8. RHUPH20/RITUXIMAB [Suspect]
     Dosage: LAST DOSE PRIOR TO SAE: 14/MAY/2012
     Route: 058
     Dates: start: 20120820
  9. RHUPH20/RITUXIMAB [Suspect]
     Dosage: LAST DOSE PRIOR TO SAE: 14/MAY/2012
     Route: 058
     Dates: start: 20120917
  10. RHUPH20/RITUXIMAB [Suspect]
     Route: 058
     Dates: start: 20121126
  11. RHUPH20/RITUXIMAB [Suspect]
     Route: 058
     Dates: start: 20130121
  12. RHUPH20/RITUXIMAB [Suspect]
     Route: 058
     Dates: start: 20130318
  13. RHUPH20/RITUXIMAB [Suspect]
     Route: 058
     Dates: start: 20130708
  14. RHUPH20/RITUXIMAB [Suspect]
     Route: 058
     Dates: start: 20130513
  15. FLUDARABINE [Suspect]
     Indication: B-CELL LYMPHOMA
     Dosage: LAST DOSE PRIOR TO SAE : 14/MAY/2012
     Route: 048
  16. FOLINATE DE CALCIUM [Concomitant]
     Indication: ANAEMIA
     Route: 065
     Dates: start: 20111122
  17. COTRIMOXAZOLE [Concomitant]
     Indication: PROPHYLAXIS
     Route: 065
     Dates: start: 20120213
  18. VALACICLOVIR [Concomitant]
     Indication: PROPHYLAXIS
     Route: 065
     Dates: start: 20120213
  19. DARBEPOETIN ALFA [Concomitant]
     Indication: ANAEMIA
     Route: 065
     Dates: start: 20120213, end: 20120416
  20. PARACETAMOL [Concomitant]
     Indication: PELVIC PAIN
     Route: 065
     Dates: start: 20120319, end: 20120319
  21. ORACILLINE [Concomitant]
     Indication: PROPHYLAXIS
     Dosage: TOTAL DAILY DOSE: 2 MUI
     Route: 065
     Dates: start: 20120213
  22. PREDNISONE [Concomitant]
     Indication: ARTHRALGIA
     Route: 065
     Dates: start: 20120329, end: 20120329
  23. IXPRIM [Concomitant]
     Indication: PAIN
     Route: 065
     Dates: start: 20120625
  24. POLARAMINE [Concomitant]
     Route: 042
     Dates: start: 20120218, end: 20120218
  25. POLARAMINE [Concomitant]
     Route: 048
     Dates: start: 20120319
  26. PARACETAMOL [Concomitant]
     Route: 042
     Dates: start: 20120218, end: 20120218
  27. PARACETAMOL [Concomitant]
     Route: 048
     Dates: start: 20120319
  28. CLARITHROMYCINE [Concomitant]
     Route: 065
     Dates: start: 20130127, end: 20130131
  29. CLARITHROMYCINE [Concomitant]
     Route: 065
     Dates: start: 20130204, end: 20130209
  30. 5-FLUOROURACIL [Concomitant]
     Dosage: PRN
     Route: 065
     Dates: start: 200903
  31. CICLOPIROX OLAMINE [Concomitant]
     Indication: PSORIASIS
     Dosage: TORTAL DAILY DOSE/UNITS-PRN
     Route: 065
     Dates: start: 20120412
  32. AMOXYCILLIN [Concomitant]
     Indication: OTITIS EXTERNA
     Route: 065
     Dates: start: 20140414, end: 20140421

REACTIONS (3)
  - Tremor [Recovered/Resolved]
  - Infusion related reaction [Recovered/Resolved]
  - Urticaria [Recovered/Resolved]
